FAERS Safety Report 5338759-1 (Version None)
Quarter: 2007Q2

REPORT INFORMATION
  Report Type: 
  Country: None (occurrence: None)
  Receive Date: 20070322
  Receipt Date: 20060214
  Transmission Date: 20071010
  Serious: Yes (Other)
  Sender: FDA-Public Use
  Company Number: 200610496BCC

PATIENT
  Age: 72 Year
  Sex: Female
  Weight: 72.5755 kg

DRUGS (8)
  1. ALEVE [Suspect]
     Indication: ARTHRITIS
     Dosage: 880 MG, TOTAL DAILY, ORAL
     Route: 048
     Dates: start: 20000101, end: 20051201
  2. ACCUPRIL [Concomitant]
  3. LOPRESSOR [Concomitant]
  4. NORVASC [Concomitant]
  5. VIOXX [Concomitant]
  6. GLUCOTROL XL [Concomitant]
  7. GLUCOPHAGE [Concomitant]
  8. DIAZAPEM [Concomitant]

REACTIONS (1)
  - HAEMATOCHEZIA [None]
